FAERS Safety Report 10581663 (Version 1)
Quarter: 2014Q4

REPORT INFORMATION
  Report Type: Spontaneous
  Country: IN (occurrence: IN)
  Receive Date: 20141113
  Receipt Date: 20141113
  Transmission Date: 20150529
  Serious: Yes (Hospitalization, Other)
  Sender: FDA-Public Use
  Company Number: IN-WATSON-2014-24201

PATIENT
  Age: 41 Year
  Sex: Female

DRUGS (6)
  1. AMLODIPINE [Concomitant]
     Active Substance: AMLODIPINE BESYLATE
     Indication: HYPERTENSION
     Dosage: 50 MG, DAILY
     Route: 065
  2. ATENOLOL. [Concomitant]
     Active Substance: ATENOLOL
     Indication: HYPERTENSION
     Dosage: 5 MG, DAILY
     Route: 065
  3. TRANEXAMIC ACID (UNKNOWN) [Suspect]
     Active Substance: TRANEXAMIC ACID
     Indication: MENORRHAGIA
  4. MEFENAMIC ACID (UNKNOWN) [Suspect]
     Active Substance: MEFENAMIC ACID
     Indication: MENORRHAGIA
  5. TRANEXAMIC ACID (UNKNOWN) [Suspect]
     Active Substance: TRANEXAMIC ACID
     Indication: DYSMENORRHOEA
     Dosage: 500 MG, TID, EVERY 5 DAYS FROM THE ONSET OF EVERY MENSTRUAL PERIOD
     Route: 048
  6. MEFENAMIC ACID (UNKNOWN) [Suspect]
     Active Substance: MEFENAMIC ACID
     Indication: DYSMENORRHOEA
     Dosage: 250 MG, TID, EVERY 5 DAYS FROM THE ONSET OF EVERY MENSTRUAL PERIOD
     Route: 048

REACTIONS (5)
  - Acute myocardial infarction [Recovered/Resolved]
  - Dilatation ventricular [None]
  - Coronary artery thrombosis [None]
  - Diastolic dysfunction [None]
  - Left ventricular hypertrophy [None]
